FAERS Safety Report 4367177-8 (Version None)
Quarter: 2004Q2

REPORT INFORMATION
  Report Type: 
  Country: None (occurrence: None)
  Receive Date: 20040524
  Receipt Date: 20040511
  Transmission Date: 20050107
  Serious: Yes (Hospitalization, Other)
  Sender: FDA-Public Use
  Company Number: HQWYE866412MAY04

PATIENT
  Age: 47 Year
  Sex: Female
  Weight: 55 kg

DRUGS (10)
  1. RAPAMUNE [Suspect]
     Indication: PROPHYLAXIS AGAINST TRANSPLANT REJECTION
     Dosage: SEE IMAGE
     Dates: start: 20040503, end: 20040506
  2. RAPAMUNE [Suspect]
     Indication: PROPHYLAXIS AGAINST TRANSPLANT REJECTION
     Dosage: SEE IMAGE
     Dates: start: 20040508
  3. PREDNISONE TAB [Suspect]
     Indication: PROPHYLAXIS AGAINST TRANSPLANT REJECTION
     Dosage: 35 MG 1X PER 1 DAY, ORAL
     Route: 048
  4. PROGRAF [Suspect]
     Indication: PROPHYLAXIS AGAINST TRANSPLANT REJECTION
  5. VALCYTE [Concomitant]
  6. PROTONIX [Concomitant]
  7. HECTOROL [Concomitant]
  8. LOVASTATIN [Concomitant]
  9. NORVASC [Concomitant]
  10. CLONIDINE [Concomitant]

REACTIONS (9)
  - ABDOMINAL DISTENSION [None]
  - ALANINE AMINOTRANSFERASE INCREASED [None]
  - ASPARTATE AMINOTRANSFERASE INCREASED [None]
  - BLOOD CALCIUM INCREASED [None]
  - BLOOD CREATININE INCREASED [None]
  - BLOOD UREA INCREASED [None]
  - DISCOMFORT [None]
  - NAUSEA [None]
  - VOMITING [None]
